FAERS Safety Report 7622951-7 (Version None)
Quarter: 2011Q3

REPORT INFORMATION
  Report Type: 
  Country: None (occurrence: None)
  Receive Date: 20110720
  Receipt Date: 20110711
  Transmission Date: 20111222
  Serious: Yes (Hospitalization)
  Sender: FDA-Public Use
  Company Number: FR-KINGPHARMUSA00001-K201100803

PATIENT
  Age: 82 Year
  Sex: Male

DRUGS (7)
  1. ALTACE [Suspect]
     Dosage: 5 MG, QD
     Route: 048
     Dates: start: 20110525
  2. ALDACTONE [Suspect]
     Dosage: 100 MG, QD
     Route: 048
     Dates: start: 20100525, end: 20110524
  3. NITRODERM [Concomitant]
  4. ATORVASTATIN CALCIUM [Concomitant]
  5. CORDARONE [Concomitant]
     Dosage: 200 MG, UNK
  6. LASIX [Suspect]
     Dosage: 125 MG, QD
     Route: 048
     Dates: start: 20100525
  7. PLAVIX [Concomitant]

REACTIONS (2)
  - DEHYDRATION [None]
  - RENAL FAILURE [None]
